FAERS Safety Report 6742619-9 (Version None)
Quarter: 2010Q2

REPORT INFORMATION
  Report Type: 
  Country: None (occurrence: None)
  Receive Date: 20100526
  Receipt Date: 20100518
  Transmission Date: 20101027
  Serious: Yes (Hospitalization)
  Sender: FDA-Public Use
  Company Number: AU-ROCHE-661278

PATIENT
  Age: 55 Year
  Sex: Male

DRUGS (3)
  1. MYCOPHENOLATE MOFETIL [Suspect]
     Route: 065
  2. PROGRAF [Suspect]
     Route: 065
  3. PREDNISOLONE [Suspect]
     Route: 065

REACTIONS (7)
  - ABSCESS FUNGAL [None]
  - AORTIC ANEURYSM [None]
  - FUNGAL SKIN INFECTION [None]
  - GRANULOMA SKIN [None]
  - MYCOTIC ANEURYSM [None]
  - OSTEOMYELITIS [None]
  - SCEDOSPORIUM INFECTION [None]
